FAERS Safety Report 5910681-9 (Version None)
Quarter: 2008Q4

REPORT INFORMATION
  Report Type: 
  Country: None (occurrence: None)
  Receive Date: 20081007
  Receipt Date: 20080912
  Transmission Date: 20090506
  Serious: Yes (Hospitalization)
  Sender: FDA-Public Use
  Company Number: US-ROCHE-589722

PATIENT
  Sex: Male

DRUGS (25)
  1. CAPECITABINE [Suspect]
     Dosage: DOSE REPORTED AS 100 MG/M2 ACTUAL DOSE 2000 MG THERAPY WAS REPORTED AS INTERUPTED
     Route: 048
     Dates: start: 20071030
  2. CAPECITABINE [Suspect]
     Route: 048
  3. OXALIPLATIN [Suspect]
     Route: 042
     Dates: start: 20071030
  4. OXALIPLATIN [Suspect]
     Route: 042
     Dates: end: 20071212
  5. TAXOFERE [Suspect]
     Route: 042
     Dates: start: 20071030
  6. TAXOFERE [Suspect]
     Route: 042
     Dates: end: 20071212
  7. AUGMENTIN '125' [Concomitant]
     Dosage: INDICATION AND DOSE NOT LEGIBLE
     Route: 048
     Dates: start: 20071022, end: 20071031
  8. 1 CONCOMITANT DRUG [Concomitant]
     Dosage: DRUG REPORTED AS PEAUIX
     Route: 048
     Dates: start: 20060801, end: 20071118
  9. 1 CONCOMITANT DRUG [Concomitant]
     Dosage: DRUG REPORTED AS LASIE
     Route: 048
     Dates: start: 20030101, end: 20071118
  10. 1 CONCOMITANT DRUG [Concomitant]
     Route: 048
     Dates: start: 20071120
  11. LOVASTATIN [Concomitant]
     Route: 048
     Dates: start: 20050101, end: 20071118
  12. LOVASTATIN [Concomitant]
     Route: 048
     Dates: start: 20071120
  13. COREG [Concomitant]
     Indication: TACHYCARDIA
     Route: 048
     Dates: start: 20050101, end: 20071118
  14. COREG [Concomitant]
     Route: 048
     Dates: start: 20071119
  15. PRINIVIL [Concomitant]
     Dosage: INDICATION REPORTED AS HEP
     Route: 048
     Dates: start: 20050101, end: 20071108
  16. NIACIN [Concomitant]
     Route: 048
     Dates: start: 20060801, end: 20071108
  17. 1 CONCOMITANT DRUG [Concomitant]
     Indication: PROPHYLAXIS
     Dosage: DRUG REPORTED AS ABA
     Route: 048
     Dates: start: 20050101, end: 20071001
  18. NPH INSULIN, BEEF [Concomitant]
     Dosage: 14 UNITS TAKEN IN THE MORNING AND 10 UNITS IN THE EVENING
     Route: 058
     Dates: start: 20050101, end: 20071118
  19. 1 CONCOMITANT DRUG [Concomitant]
     Dosage: 3 UNITS TAKEN IN THE MORNING AND 3 AT DINNER DRUG NAME REPORTED AS NOVALEG
     Route: 058
     Dates: start: 20050101, end: 20071118
  20. 1 CONCOMITANT DRUG [Concomitant]
     Dosage: 3 UNITS TAKEN IN THE MORNING AND 3 AT DINNER DRUG NAME REPORTED AS NOVALEG
     Route: 058
     Dates: start: 20071120
  21. 1 CONCOMITANT DRUG [Concomitant]
     Indication: CATHETER PLACEMENT
     Dosage: DRUG REPORTED AS PENCECET
     Route: 048
     Dates: start: 20071016
  22. COMPAZINE [Concomitant]
     Indication: NAUSEA
     Route: 048
     Dates: start: 20071125
  23. 1 CONCOMITANT DRUG [Concomitant]
     Dosage: DOSE GIVEN AT EACH CHEMO SESSION DRUG REPORTED AS AECADION
     Route: 048
     Dates: start: 20071029
  24. ACETAMINOPHEN [Concomitant]
     Route: 048
     Dates: start: 20071117, end: 20071130
  25. ONDANSETRON [Concomitant]
     Route: 042
     Dates: start: 20071117, end: 20071120

REACTIONS (1)
  - HIATUS HERNIA [None]
